FAERS Safety Report 8201103-6 (Version None)
Quarter: 2012Q1

REPORT INFORMATION
  Report Type: 
  Country: None (occurrence: None)
  Receive Date: 20120312
  Receipt Date: 20120203
  Transmission Date: 20120608
  Serious: No
  Sender: FDA-Public Use
  Company Number: US-ABBOTT-12P-163-0903463-00

PATIENT
  Age: 45 Year
  Sex: Female
  Weight: 92.162 kg

DRUGS (2)
  1. AYGESTIN [Concomitant]
     Indication: HOT FLUSH
  2. LUPRON DEPOT [Suspect]
     Indication: UTERINE LEIOMYOMA
     Route: 050
     Dates: start: 20120111

REACTIONS (2)
  - AMENORRHOEA [None]
  - WEIGHT INCREASED [None]
